FAERS Safety Report 17318165 (Version 2)
Quarter: 2020Q1

REPORT INFORMATION
  Report Type: Spontaneous
  Country: JP (occurrence: JP)
  Receive Date: 20200124
  Receipt Date: 20200214
  Transmission Date: 20200409
  Serious: Yes (Hospitalization, Other)
  Sender: FDA-Public Use
  Company Number: JP-BAUSCH-BL-2020-001241

PATIENT
  Age: 77 Year
  Sex: Male
  Weight: 57.2 kg

DRUGS (3)
  1. ACYCLOVIR. [Suspect]
     Active Substance: ACYCLOVIR
     Dosage: FURTHER REDUCED TO HALF FROM A RECOMMENDED DOSE FOR DIALYSIS PATIENTS WAS STARTED
     Route: 048
  2. ACYCLOVIR. [Suspect]
     Active Substance: ACYCLOVIR
     Indication: HERPES ZOSTER
     Dosage: OVERDOSE
     Route: 048
  3. VIDARABINE [Concomitant]
     Active Substance: VIDARABINE
     Indication: HERPES ZOSTER

REACTIONS (2)
  - Overdose [Unknown]
  - Toxic encephalopathy [Recovered/Resolved]
